FAERS Safety Report 4656145-4 (Version None)
Quarter: 2005Q2

REPORT INFORMATION
  Report Type: 
  Country: None (occurrence: None)
  Receive Date: 20050509
  Receipt Date: 20050311
  Transmission Date: 20051028
  Serious: Yes (Hospitalization)
  Sender: FDA-Public Use
  Company Number: JP-ROCHE-398530

PATIENT
  Age: 74 Year
  Sex: Female

DRUGS (12)
  1. RIVOTRIL [Suspect]
     Route: 048
     Dates: start: 20031202, end: 20050302
  2. BESACOLIN [Suspect]
     Route: 048
     Dates: start: 20041130, end: 20050302
  3. ZYRTEC [Suspect]
     Route: 048
     Dates: start: 20041228, end: 20050302
  4. SELBEX [Concomitant]
     Route: 048
     Dates: start: 20000605, end: 20050302
  5. MAGNESIUM OXIDE [Concomitant]
     Dosage: TRADE NAME REPORTED AS 'MAGLAX'.
     Route: 048
     Dates: start: 20000605, end: 20050302
  6. BASEN [Concomitant]
     Route: 048
     Dates: start: 20000605
  7. BENZALIN [Concomitant]
     Route: 048
     Dates: start: 20010220
  8. PROMETHAZINE HCL [Concomitant]
     Route: 048
     Dates: start: 20010220
  9. DEPAS [Concomitant]
     Route: 048
     Dates: start: 20010313
  10. SILECE [Concomitant]
     Route: 048
     Dates: start: 20010313
  11. SOLANAX [Concomitant]
     Route: 048
     Dates: start: 20031202
  12. 1 CONCOMITANT DRUG [Concomitant]
     Route: 048
     Dates: start: 20040623, end: 20050302

REACTIONS (2)
  - MUSCULAR WEAKNESS [None]
  - PANCYTOPENIA [None]
